FAERS Safety Report 4685013-7 (Version None)
Quarter: 2005Q2

REPORT INFORMATION
  Report Type: 
  Country: None (occurrence: None)
  Receive Date: 20050531
  Receipt Date: 20050308
  Transmission Date: 20051028
  Serious: No
  Sender: FDA-Public Use
  Company Number: WAES 0503USA01210

PATIENT
  Age: 75 Year
  Sex: Male

DRUGS (6)
  1. ZETIA [Suspect]
     Indication: BLOOD CHOLESTEROL INCREASED
     Dosage: 10 MG/DAILY/PO
     Route: 048
     Dates: start: 20041101, end: 20041201
  2. ZETIA [Suspect]
     Indication: BLOOD CHOLESTEROL INCREASED
     Dosage: 10 MG/DAILY/PO
     Route: 048
     Dates: start: 20050308, end: 20050415
  3. NORVASC [Concomitant]
  4. PLETAL [Concomitant]
  5. TOPROL-XL [Concomitant]
  6. ZOCOR [Concomitant]

REACTIONS (2)
  - MEDICATION ERROR [None]
  - PERIPHERAL VASCULAR DISORDER [None]
